FAERS Safety Report 17295178 (Version 1)
Quarter: 2020Q1

REPORT INFORMATION
  Report Type: Report from Study
  Country: US (occurrence: US)
  Receive Date: 20200121
  Receipt Date: 20200121
  Transmission Date: 20200409
  Serious: Yes (Other)
  Sender: FDA-Public Use
  Company Number: US-PFIZER INC-2020019469

PATIENT

DRUGS (2)
  1. SUCCINYLCHOLINE CHLORIDE. [Suspect]
     Active Substance: SUCCINYLCHOLINE CHLORIDE
     Indication: NEUROMUSCULAR BLOCKING THERAPY
     Dosage: 1.5 MG/KG, SINGLE (OVER 5 S)
     Route: 042
  2. THIOPENTAL [Suspect]
     Active Substance: THIOPENTAL
     Indication: ANAESTHESIA
     Dosage: 5 MG/KG, SINGLE
     Route: 042

REACTIONS (2)
  - Foetal exposure during delivery [Unknown]
  - Neonatal respiratory distress syndrome [Unknown]
